FAERS Safety Report 10533490 (Version 1)
Quarter: 2014Q4

REPORT INFORMATION
  Report Type: Spontaneous
  Country: US (occurrence: None)
  Receive Date: 20141021
  Receipt Date: 20141021
  Transmission Date: 20150529
  Serious: Yes (Life-Threatening)
  Sender: FDA-Public Use
  Company Number: None

PATIENT
  Age: 65 Year
  Sex: Female
  Weight: 58 kg

DRUGS (2)
  1. ANCEF [Suspect]
     Active Substance: CEFAZOLIN SODIUM
  2. VECURONIUM [Suspect]
     Active Substance: VECURONIUM BROMIDE

REACTIONS (4)
  - Hypotension [None]
  - Anaphylactic reaction [None]
  - Erythema [None]
  - Procedural complication [None]

NARRATIVE: CASE EVENT DATE: 20140908
